FAERS Safety Report 15820582 (Version 2)
Quarter: 2019Q1

REPORT INFORMATION
  Report Type: Report from Study
  Country: JP (occurrence: JP)
  Receive Date: 20190114
  Receipt Date: 20190218
  Transmission Date: 20190417
  Serious: Yes (Hospitalization, Other)
  Sender: FDA-Public Use
  Company Number: JP-ACTELION-A-CH2019-184717

PATIENT
  Age: 65 Year
  Sex: Female

DRUGS (5)
  1. OPSUMIT [Suspect]
     Active Substance: MACITENTAN
     Indication: PULMONARY ARTERIAL HYPERTENSION
     Dosage: 10 MG, QD
     Route: 048
     Dates: start: 20160704
  2. TREPROST [Concomitant]
     Active Substance: TREPROSTINIL
  3. OXYGEN. [Concomitant]
     Active Substance: OXYGEN
  4. ADEMPAS [Concomitant]
     Active Substance: RIOCIGUAT
  5. LUPRAC [Concomitant]
     Active Substance: TORSEMIDE

REACTIONS (2)
  - Bladder cancer [Recovering/Resolving]
  - Cancer surgery [Unknown]

NARRATIVE: CASE EVENT DATE: 201808
